FAERS Safety Report 8840449 (Version 2)
Quarter: 2015Q1

REPORT INFORMATION
  Report Type: Report from Study
  Country: US (occurrence: US)
  Receive Date: 20121015
  Receipt Date: 20150128
  Transmission Date: 20150721
  Serious: Yes (Other)
  Sender: FDA-Public Use
  Company Number: US-ROCHE-1139626

PATIENT
  Sex: Female
  Weight: 4.3 kg

DRUGS (7)
  1. PROTROPIN [Suspect]
     Active Substance: SOMATREM
     Route: 058
     Dates: start: 199802
  2. PROTROPIN [Suspect]
     Active Substance: SOMATREM
     Route: 058
     Dates: start: 199802
  3. LEVOTHYROXINE [Concomitant]
     Active Substance: LEVOTHYROXINE
     Route: 065
  4. CORTEF [Concomitant]
     Active Substance: HYDROCORTISONE
     Dosage: 4 MG PER DAY IN THREE DIVIDED DOSES
     Route: 065
  5. SOLU-CORTEF [Concomitant]
     Active Substance: HYDROCORTISONE SODIUM SUCCINATE
  6. PROTROPIN [Suspect]
     Active Substance: SOMATREM
     Indication: HYPOPITUITARISM
     Dosage: DILUTE WTH 2 ML, DOSE PER INJECTION 0.17 ML, 3CC
     Route: 058
     Dates: start: 199802
  7. SYNTHROID [Concomitant]
     Active Substance: LEVOTHYROXINE SODIUM
     Route: 065

REACTIONS (6)
  - Vomiting [Unknown]
  - Lethargy [Unknown]
  - Ear infection [Unknown]
  - Decreased appetite [Unknown]
  - Blood glucose decreased [Unknown]
  - Mood altered [Unknown]
